FAERS Safety Report 22037475 (Version 1)
Quarter: 2023Q1

REPORT INFORMATION
  Report Type: Spontaneous
  Country: US (occurrence: US)
  Receive Date: 20230226
  Receipt Date: 20230226
  Transmission Date: 20230418
  Serious: No
  Sender: FDA-Public Use
  Company Number: US-Accord-257555

PATIENT
  Sex: Male
  Weight: 86.18 kg

DRUGS (5)
  1. BUSPIRONE HYDROCHLORIDE [Suspect]
     Active Substance: BUSPIRONE HYDROCHLORIDE
     Indication: Anxiety
     Dosage: DOSE: 15MG TWICE A DAY (MORNING AND EVENING)
  2. BACLOFEN [Concomitant]
     Active Substance: BACLOFEN
     Indication: Muscle relaxant therapy
     Dosage: STRENGTH: 15 MG
  3. OMEPRAZOLE [Concomitant]
     Active Substance: OMEPRAZOLE
  4. MELOXICAM [Concomitant]
     Active Substance: MELOXICAM
     Dosage: EVENINGS
  5. ATARAX [Concomitant]
     Active Substance: HYDROXYZINE HYDROCHLORIDE

REACTIONS (2)
  - Somnolence [Not Recovered/Not Resolved]
  - Dizziness [Not Recovered/Not Resolved]
